FAERS Safety Report 9619690 (Version 1)
Quarter: 2013Q4

REPORT INFORMATION
  Report Type: Report from Study
  Country: US (occurrence: US)
  Receive Date: 20131014
  Receipt Date: 20131014
  Transmission Date: 20140711
  Serious: Yes (Other)
  Sender: FDA-Public Use
  Company Number: US-ROCHE-1284362

PATIENT
  Age: 48 Year
  Sex: Female

DRUGS (18)
  1. RITUXAN [Suspect]
     Indication: RHEUMATOID ARTHRITIS
     Dosage: 10 MG/ML CONCENTRATE; (INFUSE 375 MG/M2) TWICE
     Route: 042
     Dates: start: 20130307, end: 20130903
  2. ACTEMRA [Suspect]
     Indication: PRODUCT USED FOR UNKNOWN INDICATION
     Dosage: 200 MG/10 ML (20 MG/ML)
     Route: 042
     Dates: start: 20130903
  3. CLONAZEPAM [Concomitant]
     Dosage: 0.15 MG -30 MCG
     Route: 065
     Dates: start: 20130824
  4. ETHINYL ESTRADIOL [Concomitant]
     Dosage: TAKE 1.5 TAB QHS
     Route: 048
     Dates: start: 20130603, end: 20130903
  5. ETHINYL ESTRADIOL [Concomitant]
     Dosage: TAKE 1.5 TAB QHS
     Route: 048
     Dates: start: 20130903
  6. CYMBALTA [Concomitant]
     Dosage: DELAYED RELEASE
     Route: 065
     Dates: start: 20130903
  7. CYMBALTA [Concomitant]
     Dosage: DELAYED RELEASE
     Route: 048
     Dates: start: 20130603
  8. FOLIC ACID [Concomitant]
     Route: 048
     Dates: start: 20130903
  9. FOLIC ACID [Concomitant]
     Route: 048
     Dates: start: 20130603
  10. GABAPENTIN [Concomitant]
     Route: 048
     Dates: start: 20130903
  11. GABAPENTIN [Concomitant]
     Route: 048
     Dates: start: 20130603
  12. HYDROCODONE BITARTRATE [Concomitant]
     Dosage: 7.5MG/325MG; AS NEEDED FOR PAIN
     Route: 048
     Dates: start: 20130903
  13. HYDROCODONE BITARTRATE [Concomitant]
     Dosage: 7.5MG/325MG ; AS NEEDED FOR PAIN
     Route: 048
     Dates: start: 20130603
  14. METHOTREXATE SODIUM [Concomitant]
     Dosage: 25 MG/ML INJECTION, INJECT 0.8 ML (20 MG)
     Route: 030
     Dates: start: 20130903
  15. METHOTREXATE SODIUM [Concomitant]
     Dosage: 25 MG/ML INJECTION, INJECT 0.8 ML (20 MG)
     Route: 030
  16. ZOLPIDEM [Concomitant]
     Route: 048
     Dates: start: 20130603
  17. ZOLPIDEM [Concomitant]
     Route: 048
     Dates: start: 20130903
  18. ACETAMINOPHEN [Concomitant]

REACTIONS (53)
  - Spinal osteoarthritis [Unknown]
  - Rheumatoid arthritis [Unknown]
  - Rheumatoid arthritis [Unknown]
  - Discomfort [Unknown]
  - Pain [Unknown]
  - Decreased activity [Unknown]
  - Fatigue [Unknown]
  - Headache [Unknown]
  - Musculoskeletal stiffness [Unknown]
  - Sjogren^s syndrome [Unknown]
  - Abdominal pain [Unknown]
  - Decreased appetite [Unknown]
  - Eye disorder [Unknown]
  - Paraesthesia [Unknown]
  - Rash [Unknown]
  - Weight decreased [Unknown]
  - Fibromyalgia [Unknown]
  - Epistaxis [Unknown]
  - Autonomic nervous system imbalance [Unknown]
  - Orthostatic hypotension [Unknown]
  - Cystitis [Unknown]
  - Micturition urgency [Unknown]
  - Vulvovaginal dryness [Unknown]
  - Dyspareunia [Unknown]
  - Burning sensation [Unknown]
  - Skin ulcer [Unknown]
  - Red blood cell sedimentation rate increased [Unknown]
  - Urine analysis abnormal [Unknown]
  - Antinuclear antibody positive [Unknown]
  - Chills [Unknown]
  - Exercise tolerance decreased [Unknown]
  - Night sweats [Unknown]
  - Weight increased [Unknown]
  - Dyspnoea [Unknown]
  - Pleuritic pain [Unknown]
  - Constipation [Unknown]
  - Diarrhoea [Unknown]
  - Temperature intolerance [Unknown]
  - Anxiety [Unknown]
  - Mood swings [Unknown]
  - Panic attack [Unknown]
  - Sleep disorder [Unknown]
  - Balance disorder [Unknown]
  - Coordination abnormal [Unknown]
  - Speech disorder [Unknown]
  - Oral discomfort [Unknown]
  - Lip dry [Unknown]
  - Dry skin [Unknown]
  - Alopecia [Unknown]
  - Pruritus [Unknown]
  - Arthralgia [Unknown]
  - Myelopathy [Unknown]
  - Fall [Unknown]
